FAERS Safety Report 4277846-6 (Version None)
Quarter: 2004Q1

REPORT INFORMATION
  Report Type: 
  Country: None (occurrence: None)
  Receive Date: 20040121
  Receipt Date: 20030224
  Transmission Date: 20041129
  Serious: Yes (Hospitalization, Other)
  Sender: FDA-Public Use
  Company Number: 2003-02-1048

PATIENT
  Sex: Male

DRUGS (3)
  1. SUBUTEX [Suspect]
     Indication: DRUG DEPENDENCE
     Dosage: 8-24 MG QD
     Route: 042
     Dates: end: 20030115
  2. BIRSTOPEN [Concomitant]
  3. CIFLOX [Concomitant]

REACTIONS (3)
  - BACTERIAL INFECTION [None]
  - DRUG DEPENDENCE [None]
  - INTENTIONAL MISUSE [None]
